FAERS Safety Report 4558803-9 (Version None)
Quarter: 2005Q1

REPORT INFORMATION
  Report Type: 
  Country: None (occurrence: None)
  Receive Date: 20050119
  Receipt Date: 20050107
  Transmission Date: 20050727
  Serious: Yes (Hospitalization)
  Sender: FDA-Public Use
  Company Number: 001-0981-996729

PATIENT
  Age: 71 Year
  Sex: Male
  Weight: 133.8111 kg

DRUGS (6)
  1. ATORVASTATIN (ATORVASTATIN) [Suspect]
     Indication: CORONARY ARTERY DISEASE
     Dosage: SEE IMAGE
     Route: 048
     Dates: start: 19990104, end: 19990224
  2. ATORVASTATIN (ATORVASTATIN) [Suspect]
     Indication: CORONARY ARTERY DISEASE
     Dosage: SEE IMAGE
     Route: 048
     Dates: start: 19990225
  3. METOPROLOL TARTRATE [Concomitant]
  4. TOCOPHEROL (TOCOPHEROL) [Concomitant]
  5. ASPIRIN [Concomitant]
  6. KARVEA HCT (HYDROCHLOROTHIAZIDE, IRBESARTAN) [Concomitant]

REACTIONS (5)
  - BENIGN PROSTATIC HYPERPLASIA [None]
  - COMPUTERISED TOMOGRAM ABNORMAL [None]
  - PAIN [None]
  - PROSTATITIS [None]
  - URINARY HESITATION [None]
